FAERS Safety Report 5214659-2 (Version None)
Quarter: 2007Q1

REPORT INFORMATION
  Report Type: 
  Country: None (occurrence: None)
  Receive Date: 20070122
  Receipt Date: 20070108
  Transmission Date: 20070707
  Serious: Yes (Other)
  Sender: FDA-Public Use
  Company Number: US-ELI_LILLY_AND_COMPANY-US200611000577

PATIENT
  Age: 84 Year
  Sex: Female
  Weight: 74.829 kg

DRUGS (6)
  1. DETROL [Concomitant]
     Indication: URINARY INCONTINENCE
     Dosage: UNK MG, AS NEEDED
  2. PLAVIX                                  /UNK/ [Concomitant]
     Dosage: 75 MG, DAILY (1/D)
  3. NEXIUM [Concomitant]
     Indication: GASTROOESOPHAGEAL REFLUX DISEASE
     Dosage: 40 MG, DAILY (1/D)
  4. ASPIRIN [Concomitant]
     Dosage: 81 MG, DAILY (1/D)
  5. DITROPAN [Concomitant]
  6. CYMBALTA [Suspect]
     Indication: ANXIETY
     Dosage: 30 MG, UNK
     Dates: start: 20060406, end: 20060407

REACTIONS (11)
  - BALANCE DISORDER [None]
  - COORDINATION ABNORMAL [None]
  - FEAR [None]
  - FEELING ABNORMAL [None]
  - FLASHBACK [None]
  - HALLUCINATION [None]
  - INSOMNIA [None]
  - PANIC ATTACK [None]
  - SOMATOFORM DISORDER [None]
  - TREMOR [None]
  - VERTIGO [None]
